FAERS Safety Report 5034343-8 (Version None)
Quarter: 2006Q2

REPORT INFORMATION
  Report Type: 
  Country: None (occurrence: None)
  Receive Date: 20060626
  Receipt Date: 20050406
  Transmission Date: 20061013
  Serious: Yes (Hospitalization, Disabling)
  Sender: FDA-Public Use
  Company Number: US-ROCHE-401470

PATIENT
  Age: 15 Year
  Sex: Male
  Weight: 81.6 kg

DRUGS (9)
  1. ACCUTANE [Suspect]
     Route: 048
     Dates: start: 19961028, end: 19961202
  2. ACCUTANE [Suspect]
     Dosage: 40 MG IN THE MORNING AND 20 MG IN THE EVENING.
     Route: 048
     Dates: start: 19961202
  3. ACCUTANE [Suspect]
     Dosage: REPORTED AS DIVIDED DOSES.
     Route: 048
     Dates: end: 19961218
  4. ACCUTANE [Suspect]
     Dosage: 60 MG IN THE MORNING AND 20 MG IN THE EVENING.
     Route: 048
     Dates: start: 19961218, end: 19970325
  5. ACCUTANE [Suspect]
     Route: 048
     Dates: start: 19990218
  6. ACCUTANE [Suspect]
     Route: 048
     Dates: start: 19990907, end: 19990921
  7. ACCUTANE [Suspect]
     Route: 048
     Dates: start: 19990921
  8. ACCUTANE [Suspect]
     Route: 048
     Dates: start: 20000918, end: 20010315
  9. HYDROXYZINE [Concomitant]
     Indication: URTICARIA
     Route: 048
     Dates: start: 19970123, end: 19970125

REACTIONS (12)
  - COLITIS [None]
  - COLITIS ULCERATIVE [None]
  - DRY SKIN [None]
  - EPISTAXIS [None]
  - ERYTHEMA [None]
  - GASTROINTESTINAL DISORDER [None]
  - INFLAMMATORY BOWEL DISEASE [None]
  - INTESTINAL HAEMORRHAGE [None]
  - LIP DRY [None]
  - MULTI-ORGAN DISORDER [None]
  - RECTAL HAEMORRHAGE [None]
  - WEIGHT DECREASED [None]
